FAERS Safety Report 15858912 (Version 1)
Quarter: 2019Q1

REPORT INFORMATION
  Report Type: Report from Study
  Country: US (occurrence: US)
  Receive Date: 20190123
  Receipt Date: 20190123
  Transmission Date: 20190417
  Serious: Yes (Other)
  Sender: FDA-Public Use
  Company Number: US-EXELIXIS-CABO-19018285

PATIENT
  Sex: Male

DRUGS (15)
  1. LIPITOR [Concomitant]
     Active Substance: ATORVASTATIN CALCIUM
  2. ZANTAC [Concomitant]
     Active Substance: RANITIDINE HYDROCHLORIDE
  3. OPDIVO [Concomitant]
     Active Substance: NIVOLUMAB
  4. BABY ASPIRIN [Concomitant]
     Active Substance: ASPIRIN
  5. SYNTHROID [Concomitant]
     Active Substance: LEVOTHYROXINE SODIUM
  6. CABOMETYX [Suspect]
     Active Substance: CABOZANTINIB S-MALATE
     Indication: RENAL CANCER
     Dosage: 20 MG, QD
     Route: 048
     Dates: start: 20170202
  7. ROXICODONE [Concomitant]
     Active Substance: OXYCODONE HYDROCHLORIDE
  8. MACRODANTIN [Concomitant]
     Active Substance: NITROFURANTOIN
  9. CABOMETYX [Suspect]
     Active Substance: CABOZANTINIB S-MALATE
     Indication: NEOPLASM MALIGNANT
     Dosage: 20 MG, QD 1 WEEK ON 1 WEEK OFF
  10. TYLENOL [Concomitant]
     Active Substance: ACETAMINOPHEN
  11. DELTASONE [Concomitant]
     Active Substance: PREDNISONE
  12. RENVELA [Concomitant]
     Active Substance: SEVELAMER CARBONATE
  13. FLOMAX [Concomitant]
     Active Substance: TAMSULOSIN HYDROCHLORIDE
  14. TOPROL XL [Concomitant]
     Active Substance: METOPROLOL SUCCINATE
  15. NORVASC [Concomitant]
     Active Substance: AMLODIPINE BESYLATE

REACTIONS (1)
  - Cerebrovascular accident [Unknown]
